FAERS Safety Report 25715931 (Version 1)
Quarter: 2025Q3

REPORT INFORMATION
  Report Type: Spontaneous
  Country: US (occurrence: US)
  Receive Date: 20250822
  Receipt Date: 20250822
  Transmission Date: 20251021
  Serious: No
  Sender: PFIZER
  Company Number: US-PFIZER INC-202500113491

PATIENT
  Age: 69 Year
  Sex: Female

DRUGS (8)
  1. IBRANCE [Suspect]
     Active Substance: PALBOCICLIB
     Indication: Hormone receptor positive breast cancer
     Route: 048
     Dates: start: 20250521, end: 2025
  2. ITOVEBI [Suspect]
     Active Substance: INAVOLISIB
     Dates: end: 2025
  3. FASLODEX [Concomitant]
     Active Substance: FULVESTRANT
  4. IRON [Concomitant]
     Active Substance: IRON
  5. OMEPRAZOLE [Concomitant]
     Active Substance: OMEPRAZOLE
  6. MAGNESIUM [Concomitant]
     Active Substance: MAGNESIUM
  7. TYLENOL [Concomitant]
     Active Substance: ACETAMINOPHEN
  8. ZOLPIDEM [Concomitant]
     Active Substance: ZOLPIDEM TARTRATE

REACTIONS (2)
  - White blood cell count decreased [Unknown]
  - Blood glucose increased [Not Recovered/Not Resolved]

NARRATIVE: CASE EVENT DATE: 20250101
